FAERS Safety Report 6999700-9 (Version None)
Quarter: 2010Q3

REPORT INFORMATION
  Report Type: 
  Country: None (occurrence: None)
  Receive Date: 20100920
  Receipt Date: 20070529
  Transmission Date: 20110219
  Serious: Yes (Hospitalization, Other)
  Sender: FDA-Public Use
  Company Number: US-ASTRAZENECA-2006UW22397

PATIENT
  Age: 594 Month
  Sex: Male
  Weight: 86.2 kg

DRUGS (11)
  1. SEROQUEL [Suspect]
     Indication: DEPRESSION
     Dosage: 200-800 MG
     Route: 048
     Dates: start: 19991101, end: 20050201
  2. SEROQUEL [Suspect]
     Route: 048
     Dates: start: 20041201
  3. ZYPREXA [Concomitant]
     Indication: INSOMNIA
     Dates: start: 19990101, end: 20020101
  4. ZYPREXA [Concomitant]
     Dosage: 2.5-20 MG
     Dates: start: 19991101
  5. CYMBALTA [Concomitant]
     Dates: start: 20060301
  6. EFFEXOR XR [Concomitant]
     Dosage: 240-450 MG
     Dates: start: 19991101
  7. NEURONTIN [Concomitant]
     Dosage: 200-3200 MG
     Route: 048
     Dates: start: 19991101
  8. CELEBREX [Concomitant]
     Dosage: 100-200 MG
     Dates: start: 19991101
  9. AMITRIPTYLINE HCL [Concomitant]
     Dates: start: 19991101
  10. WELLBUTRIN [Concomitant]
     Route: 048
     Dates: start: 20010410
  11. METHADONE [Concomitant]
     Dosage: 40-240 MG
     Route: 048
     Dates: start: 19991101

REACTIONS (2)
  - DIABETES MELLITUS [None]
  - DIABETIC COMA [None]
